FAERS Safety Report 9808642 (Version 2)
Quarter: 2014Q2

REPORT INFORMATION
  Report Type: Report from Study
  Country: US (occurrence: US)
  Receive Date: 20140110
  Receipt Date: 20140502
  Transmission Date: 20141212
  Serious: Yes (Hospitalization, Other)
  Sender: FDA-Public Use
  Company Number: US-ABBVIE-14P-163-1187027-00

PATIENT
  Age: 36 Year
  Sex: Male
  Weight: 86.53 kg

DRUGS (22)
  1. HUMIRA [Suspect]
     Indication: PRODUCT USED FOR UNKNOWN INDICATION
     Dates: start: 2005
  2. TIZANIDINE [Concomitant]
     Indication: MUSCLE SPASMS
  3. TRAMADOL [Concomitant]
     Indication: PAIN
  4. TRAMADOL [Concomitant]
     Indication: CROHN^S DISEASE
  5. ENDOCET [Concomitant]
     Indication: PAIN
  6. OMEPRAZOLE [Concomitant]
     Indication: GASTROOESOPHAGEAL REFLUX DISEASE
  7. DOXEPIN [Concomitant]
     Indication: SLEEP DISORDER THERAPY
  8. FLORA-Q PROBIOTIC [Concomitant]
     Indication: PRODUCT USED FOR UNKNOWN INDICATION
  9. MULTI VIT [Concomitant]
     Indication: VITAMIN SUPPLEMENTATION
  10. MILK THISTLE [Concomitant]
     Indication: HEPATIC FUNCTION ABNORMAL
  11. ASACOL [Concomitant]
     Indication: PRODUCT USED FOR UNKNOWN INDICATION
  12. BUDESONIDE [Concomitant]
     Indication: PRODUCT USED FOR UNKNOWN INDICATION
     Route: 048
  13. MESALAMINE [Concomitant]
     Indication: PRODUCT USED FOR UNKNOWN INDICATION
     Dosage: WITH MEALS
     Route: 048
  14. METHYLPREDNISOLONE SODIUM SUCCINATE [Concomitant]
     Indication: PRODUCT USED FOR UNKNOWN INDICATION
     Route: 042
  15. NEWMYCIN-BACITRACIN-POLYMYXIN [Concomitant]
     Indication: PRODUCT USED FOR UNKNOWN INDICATION
  16. IRON SUCROSE [Concomitant]
     Indication: PRODUCT USED FOR UNKNOWN INDICATION
     Route: 042
  17. ACIDOPHILUS-PECTIN, CITRUS [Concomitant]
     Indication: PRODUCT USED FOR UNKNOWN INDICATION
     Route: 048
  18. ALUMINUM HYDROXIDE-MAGNESIUM TRISILICATE [Concomitant]
     Indication: PRODUCT USED FOR UNKNOWN INDICATION
     Dosage: BEFORE MEALS AND AT BEDTIME
     Route: 048
  19. SALINE FLUSH [Concomitant]
     Indication: PRODUCT USED FOR UNKNOWN INDICATION
     Route: 042
  20. PANTOPRAZOLE [Concomitant]
     Indication: PRODUCT USED FOR UNKNOWN INDICATION
     Route: 042
  21. PANTOPRAZOLE [Concomitant]
     Indication: PRODUCT USED FOR UNKNOWN INDICATION
     Route: 048
  22. DOXEPIN [Concomitant]
     Indication: PRODUCT USED FOR UNKNOWN INDICATION
     Route: 048

REACTIONS (10)
  - Haemoglobin abnormal [Recovered/Resolved]
  - Migraine [Recovered/Resolved]
  - Anaemia [Unknown]
  - Crohn^s disease [Unknown]
  - Hypochromic anaemia [Unknown]
  - Crohn^s disease [Unknown]
  - Pyrexia [Recovered/Resolved]
  - Nausea [Recovered/Resolved]
  - Abdominal pain [Unknown]
  - Abdominal pain upper [Unknown]
